FAERS Safety Report 11067874 (Version 2)
Quarter: 2015Q2

REPORT INFORMATION
  Report Type: Spontaneous
  Country: FR (occurrence: FR)
  Receive Date: 20150427
  Receipt Date: 20150626
  Transmission Date: 20150821
  Serious: Yes (Hospitalization, Other)
  Sender: FDA-Public Use
  Company Number: FR-BEH-2015050505

PATIENT
  Age: 30 Year
  Sex: Female

DRUGS (2)
  1. RHOPHYLAC [Suspect]
     Active Substance: HUMAN RHO(D) IMMUNE GLOBULIN
     Indication: RHESUS INCOMPATIBILITY
     Dosage: FIRST DOSE OF RHOPHYLAC ON 16-OCT-2014, 300 MICROGRAM/2ML
     Dates: start: 20141016
  2. RHOPHYLAC [Suspect]
     Active Substance: HUMAN RHO(D) IMMUNE GLOBULIN
     Dosage: SECOND DOSE OF RHOPHYLAC ON 13-JAN-2015; 200 MICROGRAM/2ML
     Route: 042
     Dates: start: 20150113

REACTIONS (7)
  - Vaginal haemorrhage [Recovered/Resolved]
  - Prolonged rupture of membranes [Recovered/Resolved]
  - Vaginal haematoma [Recovered/Resolved]
  - Coombs indirect test negative [Recovered/Resolved]
  - Amniocentesis abnormal [Recovered/Resolved]
  - Rhesus antibodies positive [Recovered/Resolved]
  - Thrombosis [Recovered/Resolved]

NARRATIVE: CASE EVENT DATE: 20150111
